FAERS Safety Report 7732139-7 (Version None)
Quarter: 2011Q3

REPORT INFORMATION
  Report Type: 
  Country: None (occurrence: None)
  Receive Date: 20110906
  Receipt Date: 20110811
  Transmission Date: 20111222
  Serious: No
  Sender: FDA-Public Use
  Company Number: US-AMGEN-USASP2011041150

PATIENT
  Age: 59 Year
  Sex: Female

DRUGS (14)
  1. PRIMIDONE [Concomitant]
     Dosage: 250 MG, Q12H
  2. SIMVASTATIN [Concomitant]
     Dosage: UNK
  3. COQ10 [Concomitant]
     Dosage: UNK
  4. PROLIA [Suspect]
     Indication: OSTEOPENIA
     Dosage: 60 MG, Q6MO
     Dates: start: 20110425
  5. METAMUCIL                          /00029101/ [Concomitant]
     Dosage: UNK
  6. LYRICA [Concomitant]
     Dosage: UNK
  7. ALENDRONATE SODIUM [Concomitant]
     Dosage: UNK
  8. PROLIA [Suspect]
     Indication: OSTEOPOROSIS
  9. FOLTX [Concomitant]
     Dosage: UNK
  10. B100 [Concomitant]
     Dosage: UNK
  11. ACIDOPHILUS [Concomitant]
     Dosage: UNK
  12. D3 [Concomitant]
     Dosage: UNK
  13. ASPIRIN [Concomitant]
     Dosage: UNK
  14. CALCIUM WITH VITAMIN D             /00944201/ [Concomitant]
     Dosage: UNK

REACTIONS (5)
  - PAIN IN EXTREMITY [None]
  - POLLAKIURIA [None]
  - BACK PAIN [None]
  - FALL [None]
  - CONTUSION [None]
